FAERS Safety Report 5174256-4 (Version None)
Quarter: 2006Q4

REPORT INFORMATION
  Report Type: 
  Country: None (occurrence: None)
  Receive Date: 20061206
  Receipt Date: 20061122
  Transmission Date: 20070319
  Serious: Yes (Hospitalization)
  Sender: FDA-Public Use
  Company Number: 232916

PATIENT
  Age: 69 Year
  Sex: Male
  Weight: 83.5 kg

DRUGS (4)
  1. AVASTIN [Suspect]
     Indication: COLON CANCER METASTATIC
     Dosage: 626.93 MG, Q3W, INTRAVENOUS
     Route: 042
     Dates: start: 20060913, end: 20061004
  2. OXALIPLATIN [Suspect]
     Indication: COLON CANCER METASTATIC
     Dosage: 256.1 MG, Q3W, INTRAVENOUS
     Route: 042
     Dates: start: 20060913, end: 20061004
  3. CLEOCIN T GEL (CLINDAMYCIN PHOSPHATE) [Concomitant]
  4. RESTORIL [Concomitant]

REACTIONS (5)
  - DEHYDRATION [None]
  - DRUG TOXICITY [None]
  - DYSPNOEA [None]
  - LUNG INFILTRATION [None]
  - SMALL INTESTINAL OBSTRUCTION [None]
